FAERS Safety Report 5855937-3 (Version None)
Quarter: 2008Q3

REPORT INFORMATION
  Report Type: 
  Country: None (occurrence: None)
  Receive Date: 20080825
  Receipt Date: 20080820
  Transmission Date: 20090109
  Serious: Yes (Other)
  Sender: FDA-Public Use
  Company Number: PHHY2008JP10028

PATIENT
  Age: 63 Year
  Sex: Female

DRUGS (2)
  1. DIOVAN [Suspect]
     Indication: HYPERTENSION
     Dosage: 80 MG, QD
     Route: 048
     Dates: start: 20071101
  2. LIPITOR [Concomitant]

REACTIONS (6)
  - GASTROINTESTINAL DISORDER [None]
  - GLOSSITIS [None]
  - GLOSSODYNIA [None]
  - PAIN [None]
  - STOMATITIS [None]
  - SWOLLEN TONGUE [None]
